FAERS Safety Report 8308362-X (Version None)
Quarter: 2012Q2

REPORT INFORMATION
  Report Type: 
  Country: None (occurrence: None)
  Receive Date: 20120419
  Receipt Date: 20120409
  Transmission Date: 20120825
  Serious: Yes (Other)
  Sender: FDA-Public Use
  Company Number: 2012P1012677

PATIENT
  Age: 77 Year
  Sex: Male

DRUGS (3)
  1. GENTAMICIN [Concomitant]
  2. VANCOMYCIN [Suspect]
     Indication: ENDOCARDITIS
  3. AMPICILLIN [Concomitant]

REACTIONS (1)
  - LINEAR IGA DISEASE [None]
